FAERS Safety Report 7633277-X (Version None)
Quarter: 2011Q3

REPORT INFORMATION
  Report Type: 
  Country: None (occurrence: None)
  Receive Date: 20110701
  Receipt Date: 20110119
  Transmission Date: 20111222
  Serious: Yes (Hospitalization)
  Sender: FDA-Public Use
  Company Number: 7037093

PATIENT
  Age: 45 Year
  Sex: Female

DRUGS (12)
  1. ALBUTEROL [Concomitant]
  2. BACLOFEN [Concomitant]
  3. GABAPENTIN [Concomitant]
  4. DEPAKOTE [Concomitant]
  5. REBIF [Suspect]
     Indication: MULTIPLE SCLEROSIS
     Dosage: 44 MCG, 3 IN 1 WK, SUBCUTANEOUS
     Route: 058
     Dates: start: 20100702
  6. ATIVAN [Concomitant]
  7. NORVASC [Concomitant]
  8. ATENOLOL [Concomitant]
  9. LORTAB (VICODIN) [Concomitant]
  10. METHOTREXATE [Concomitant]
  11. FLEXERIL [Concomitant]
  12. METHADONE HCL [Concomitant]

REACTIONS (5)
  - PAIN [None]
  - DEPRESSION [None]
  - MIGRAINE [None]
  - NERVE COMPRESSION [None]
  - TENSION HEADACHE [None]
